FAERS Safety Report 7540119-X (Version None)
Quarter: 2011Q2

REPORT INFORMATION
  Report Type: 
  Country: None (occurrence: None)
  Receive Date: 20110610
  Receipt Date: 20110606
  Transmission Date: 20111010
  Serious: Yes (Death)
  Sender: FDA-Public Use
  Company Number: US-ASTRAZENECA-2010SE53907

PATIENT
  Age: 39 Year
  Sex: Female

DRUGS (12)
  1. SEROQUEL [Suspect]
     Route: 048
  2. ALBUTEROL SULFATE AUTOHALER [Concomitant]
  3. SEROQUEL [Suspect]
     Indication: DEPRESSION
     Route: 048
     Dates: start: 20100901, end: 20101001
  4. SEROQUEL [Suspect]
     Route: 048
     Dates: start: 20101001
  5. SEROQUEL [Suspect]
     Route: 048
     Dates: start: 20101001
  6. ADVAIR DISKUS 100/50 [Concomitant]
     Route: 055
  7. VIMOVO [Suspect]
     Route: 048
  8. CRESTOR [Suspect]
     Route: 048
  9. NEXIUM [Suspect]
     Route: 048
  10. SEROQUEL [Suspect]
     Indication: BIPOLAR DISORDER
     Route: 048
     Dates: start: 20100901, end: 20101001
  11. SYMBICORT [Suspect]
     Dosage: TWO PUFFS IN MORNING AND TWO PUFFS IN EVENING
     Route: 055
     Dates: start: 20100801, end: 20100901
  12. SEROQUEL [Suspect]
     Route: 048

REACTIONS (6)
  - CARDIAC FAILURE [None]
  - ORGAN FAILURE [None]
  - DYSPNOEA [None]
  - MANIA [None]
  - APHONIA [None]
  - DRUG INEFFECTIVE [None]
